FAERS Safety Report 6101947-0 (Version None)
Quarter: 2009Q1

REPORT INFORMATION
  Report Type: 
  Country: None (occurrence: None)
  Receive Date: 20090303
  Receipt Date: 20090303
  Transmission Date: 20090719
  Serious: Yes (Other)
  Sender: FDA-Public Use
  Company Number: None

PATIENT
  Age: 64 Year
  Sex: Female
  Weight: 58.9676 kg

DRUGS (2)
  1. ZYPREXA [Suspect]
     Indication: SCHIZOPHRENIA
     Dosage: 20 MG EVERY DAY IM
     Route: 030
     Dates: start: 20080429, end: 20080430
  2. ZYPREXA [Suspect]
     Indication: SCHIZOPHRENIA
     Dosage: 20 MG EVERY DAY PO
     Route: 048
     Dates: start: 20080501, end: 20080519

REACTIONS (2)
  - DELUSIONAL DISORDER, PERSECUTORY TYPE [None]
  - VICTIM OF ABUSE [None]
